FAERS Safety Report 4358982-2 (Version None)
Quarter: 2004Q2

REPORT INFORMATION
  Report Type: 
  Country: None (occurrence: None)
  Receive Date: 20040517
  Receipt Date: 20030819
  Transmission Date: 20050107
  Serious: Yes (Death, Life-Threatening, Hospitalization)
  Sender: FDA-Public Use
  Company Number: DE-BRISTOL-MYERS SQUIBB COMPANY-12359634

PATIENT
  Age: 64 Year
  Sex: Female
  Weight: 100 kg

DRUGS (3)
  1. TAXOL [Suspect]
     Indication: BREAST CANCER
     Route: 042
     Dates: start: 20030512, end: 20030512
  2. NITRENDIPINE [Concomitant]
     Indication: HYPERTENSION
  3. BISOPROLOL [Concomitant]
     Indication: HYPERTENSION

REACTIONS (10)
  - CARDIAC FAILURE [None]
  - CARDIOVASCULAR DISORDER [None]
  - CATHETER RELATED INFECTION [None]
  - CONVULSION [None]
  - CUSHING'S SYNDROME [None]
  - ERYSIPELAS [None]
  - MULTI-ORGAN FAILURE [None]
  - RENAL FAILURE [None]
  - SEPSIS [None]
  - TACHYARRHYTHMIA [None]
